FAERS Safety Report 10313015 (Version 2)
Quarter: 2014Q3

REPORT INFORMATION
  Report Type: Spontaneous
  Country: US (occurrence: US)
  Receive Date: 20140718
  Receipt Date: 20140904
  Transmission Date: 20150326
  Serious: No
  Sender: FDA-Public Use
  Company Number: US-PFIZER INC-2014201271

PATIENT
  Age: 61 Year
  Sex: Male
  Weight: 87.53 kg

DRUGS (3)
  1. CELEBREX [Suspect]
     Active Substance: CELECOXIB
     Indication: OSTEOARTHRITIS
     Dosage: 100 MG, DAILY
  2. CELEBREX [Suspect]
     Active Substance: CELECOXIB
     Dosage: 100 MG, 2X/DAY
  3. TRIAMTERENE AND HYDROCHLOROTHIZIDE [Concomitant]
     Indication: BLOOD PRESSURE ABNORMAL
     Dosage: (TRIAMTERENE 75MG, HYDROCHLOROTHIAZIDE 50MG) , DAILY

REACTIONS (1)
  - Pain [Not Recovered/Not Resolved]
